FAERS Safety Report 4994174-1 (Version None)
Quarter: 2006Q2

REPORT INFORMATION
  Report Type: 
  Country: None (occurrence: None)
  Receive Date: 20060503
  Receipt Date: 20060420
  Transmission Date: 20061013
  Serious: Yes (Hospitalization)
  Sender: FDA-Public Use
  Company Number: 2006056241

PATIENT
  Age: 35 Year
  Sex: Male

DRUGS (3)
  1. SULFASALAZINE [Suspect]
     Indication: COLITIS ULCERATIVE
     Dosage: 8 TABLETS, ORAL
     Route: 048
  2. FAMOTIDINE [Concomitant]
  3. ANTIFLATULENTS (ANTIFLATULENTS) [Concomitant]

REACTIONS (4)
  - ANAEMIA [None]
  - BLOOD ALBUMIN DECREASED [None]
  - FACE OEDEMA [None]
  - OEDEMA PERIPHERAL [None]
